FAERS Safety Report 4898125-X (Version None)
Quarter: 2006Q1

REPORT INFORMATION
  Report Type: 
  Country: None (occurrence: None)
  Receive Date: 20060130
  Receipt Date: 20060119
  Transmission Date: 20060701
  Serious: Yes (Life-Threatening)
  Sender: FDA-Public Use
  Company Number: 06H-163-0304577-00

PATIENT
  Sex: 0

DRUGS (1)
  1. PRECEDEX [Suspect]

REACTIONS (2)
  - CARDIO-RESPIRATORY ARREST [None]
  - FALL [None]
